FAERS Safety Report 6755616-4 (Version None)
Quarter: 2010Q2

REPORT INFORMATION
  Report Type: 
  Country: None (occurrence: None)
  Receive Date: 20100604
  Receipt Date: 20100526
  Transmission Date: 20101027
  Serious: Yes (Hospitalization, Other)
  Sender: FDA-Public Use
  Company Number: PHHY2010IT22042

PATIENT
  Sex: Female

DRUGS (5)
  1. FAMVIR [Suspect]
     Indication: HERPES ZOSTER OPHTHALMIC
     Dosage: 1000 MG
     Route: 048
     Dates: start: 20100314, end: 20100326
  2. ZOVIRAX [Suspect]
     Indication: HERPES ZOSTER OPHTHALMIC
     Dosage: 5 POSOLOGIC UNITS
     Route: 061
     Dates: start: 20100314, end: 20100326
  3. AULIN [Suspect]
     Indication: HEADACHE
     Dosage: 200 MG
     Route: 048
     Dates: start: 20100325, end: 20100326
  4. MULTI-VITAMINS [Concomitant]
     Dosage: UNK
     Dates: start: 20100325
  5. BISOPROLOL [Concomitant]
     Indication: HEADACHE
     Dosage: 1.25 MG
     Route: 048
     Dates: start: 20100327, end: 20100327

REACTIONS (5)
  - ABDOMINAL PAIN UPPER [None]
  - PRESYNCOPE [None]
  - PRURITUS [None]
  - SYNCOPE [None]
  - URTICARIA [None]
